FAERS Safety Report 24287009 (Version 2)
Quarter: 2024Q3

REPORT INFORMATION
  Report Type: Report from Study
  Country: AR (occurrence: AR)
  Receive Date: 20240905
  Receipt Date: 20240918
  Transmission Date: 20241017
  Serious: Yes (Other)
  Sender: NOVARTIS
  Company Number: AR-002147023-NVSC2024AR095417

PATIENT
  Age: 0 Year
  Sex: Female

DRUGS (4)
  1. ZOLGENSMA [Suspect]
     Active Substance: ONASEMNOGENE ABEPARVOVEC-XIOI
     Indication: Spinal muscular atrophy
     Dosage: UNK (SINGLE DOSE) (INTRAVENOUS/BY VEIN) (5 X 8.3ML)
     Route: 042
     Dates: start: 20240423, end: 20240423
  2. PREDNISONE [Concomitant]
     Active Substance: PREDNISONE
     Indication: Product used for unknown indication
     Dosage: UNK
     Route: 065
  3. PREDNISONE [Concomitant]
     Active Substance: PREDNISONE
     Dosage: 1.5 MG/KG, QD
     Route: 065
     Dates: start: 20240516
  4. PREDNISONE [Concomitant]
     Active Substance: PREDNISONE
     Dosage: 2 MG/KG, QD
     Route: 065
     Dates: start: 20240523

REACTIONS (8)
  - Bronchiolitis [Recovered/Resolved]
  - Alanine aminotransferase increased [Recovering/Resolving]
  - Troponin T increased [Not Recovered/Not Resolved]
  - Aspartate aminotransferase increased [Recovering/Resolving]
  - Pyrexia [Recovered/Resolved]
  - Hepatic enzyme increased [Unknown]
  - Motor developmental delay [Unknown]
  - Enzyme level decreased [Unknown]

NARRATIVE: CASE EVENT DATE: 20240426
